FAERS Safety Report 15154258 (Version 1)
Quarter: 2018Q3

REPORT INFORMATION
  Report Type: Spontaneous
  Country: CA (occurrence: CA)
  Receive Date: 20180717
  Receipt Date: 20180717
  Transmission Date: 20181010
  Serious: Yes (Other)
  Sender: FDA-Public Use
  Company Number: CA-ALLERGAN-1835450US

PATIENT
  Age: 73 Year
  Sex: Male
  Weight: 77 kg

DRUGS (1)
  1. CONSTELLA [Suspect]
     Active Substance: LINACLOTIDE
     Indication: CONSTIPATION
     Dosage: 145 MG, QD
     Route: 048

REACTIONS (2)
  - Nausea [Recovered/Resolved]
  - Vertigo [Recovered/Resolved]
